FAERS Safety Report 13913770 (Version 1)
Quarter: 2017Q3

REPORT INFORMATION
  Report Type: Spontaneous
  Country: US (occurrence: US)
  Receive Date: 20170828
  Receipt Date: 20170828
  Transmission Date: 20171127
  Serious: No
  Sender: FDA-Public Use
  Company Number: US-ROCHE-1139910

PATIENT
  Sex: Male
  Weight: 62.4 kg

DRUGS (3)
  1. NUTROPIN AQ [Suspect]
     Active Substance: SOMATROPIN
     Indication: GROWTH HORMONE DEFICIENCY
     Dosage: 0.3 MG/KG/WEEK,DOSE PER INJECTION 0.4 ML
     Route: 058
     Dates: start: 19970717
  2. NUTROPIN AQ [Suspect]
     Active Substance: SOMATROPIN
     Dosage: 0.53 CC
     Route: 058
  3. NUTROPIN AQ [Suspect]
     Active Substance: SOMATROPIN
     Route: 058

REACTIONS (1)
  - Ingrowing nail [Unknown]
